FAERS Safety Report 7225001-X (Version None)
Quarter: 2011Q1

REPORT INFORMATION
  Report Type: 
  Country: None (occurrence: None)
  Receive Date: 20110113
  Receipt Date: 20110105
  Transmission Date: 20110831
  Serious: Yes (Death, Life-Threatening, Hospitalization, Disabling, Other)
  Sender: FDA-Public Use
  Company Number: GB-ACTELION-A-CH2010-42897

PATIENT
  Sex: Female

DRUGS (2)
  1. BOSENTAN TABLET UNK MG DUO EU [Suspect]
     Indication: SKIN ULCER
     Dosage: UNK , UNK
     Route: 048
     Dates: end: 20100607
  2. BOSENTAN TABLET UNK MG DUO EU [Suspect]
     Dosage: UNK , UNK
     Route: 048
     Dates: start: 20071108, end: 20090501

REACTIONS (6)
  - CARDIAC FAILURE [None]
  - CORONARY ARTERY DISEASE [None]
  - PULMONARY HYPERTENSION [None]
  - CARDIAC VALVE DISEASE [None]
  - LEFT VENTRICULAR DYSFUNCTION [None]
  - AORTIC STENOSIS [None]
